FAERS Safety Report 6294338-3 (Version None)
Quarter: 2009Q3

REPORT INFORMATION
  Report Type: 
  Country: None (occurrence: None)
  Receive Date: 20090803
  Receipt Date: 20090722
  Transmission Date: 20100115
  Serious: Yes (Other)
  Sender: FDA-Public Use
  Company Number: BR-PFIZER INC-2009244586

PATIENT
  Age: 61 Year

DRUGS (2)
  1. LIPITOR [Suspect]
     Indication: BLOOD CHOLESTEROL INCREASED
     Dosage: 40 MG, DAILY
  2. CRESTOR [Suspect]

REACTIONS (2)
  - CORONARY ARTERY DISEASE [None]
  - NEOPLASM [None]
